FAERS Safety Report 12992796 (Version 1)
Quarter: 2016Q4

REPORT INFORMATION
  Report Type: Spontaneous
  Country: US (occurrence: US)
  Receive Date: 20161202
  Receipt Date: 20161202
  Transmission Date: 20170207
  Serious: No
  Sender: FDA-Public Use
  Company Number: US-BIOGEN-2016BI00322015

PATIENT
  Sex: Female

DRUGS (2)
  1. TYSABRI [Suspect]
     Active Substance: NATALIZUMAB
     Indication: PRODUCT USED FOR UNKNOWN INDICATION
     Route: 065
     Dates: start: 20070613
  2. TYSABRI [Suspect]
     Active Substance: NATALIZUMAB
     Dates: start: 20070701

REACTIONS (2)
  - Drug dose omission [Unknown]
  - Malaise [Not Recovered/Not Resolved]
